FAERS Safety Report 7753639-X (Version None)
Quarter: 2011Q3

REPORT INFORMATION
  Report Type: 
  Country: None (occurrence: None)
  Receive Date: 20110915
  Receipt Date: 20110909
  Transmission Date: 20111222
  Serious: Yes (Other)
  Sender: FDA-Public Use
  Company Number: ZA-GLAXOSMITHKLINE-B0747252A

PATIENT
  Age: 30 Year
  Sex: Female

DRUGS (6)
  1. LAMOTRIGINE [Concomitant]
  2. ACE INHIBITOR [Concomitant]
  3. UNKNOWN MEDICATION [Concomitant]
  4. VALPROATE SODIUM [Concomitant]
  5. WELLBUTRIN [Suspect]
     Indication: MAJOR DEPRESSION
     Dosage: 300MG PER DAY
     Route: 048
  6. VENLAFAXINE HYDROCHLORIDE [Concomitant]

REACTIONS (2)
  - BLOOD PRESSURE INCREASED [None]
  - HYPERTENSION [None]
